FAERS Safety Report 21302998 (Version 1)
Quarter: 2022Q3

REPORT INFORMATION
  Report Type: Spontaneous
  Country: US (occurrence: None)
  Receive Date: 20220907
  Receipt Date: 20220907
  Transmission Date: 20221027
  Serious: Yes (Hospitalization, Disabling, Other)
  Sender: FDA-Public Use
  Company Number: None

PATIENT
  Age: 62 Year
  Sex: 0
  Weight: 88.2 kg

DRUGS (1)
  1. PAXLOVID [Suspect]
     Active Substance: NIRMATRELVIR\RITONAVIR

REACTIONS (8)
  - Haemoptysis [None]
  - Respiratory tract infection viral [None]
  - Post-traumatic stress disorder [None]
  - Psychomotor hyperactivity [None]
  - Hypoaesthesia [None]
  - Confusional state [None]
  - Abnormal behaviour [None]
  - Agitation [None]

NARRATIVE: CASE EVENT DATE: 20220607
